FAERS Safety Report 25083663 (Version 3)
Quarter: 2025Q3

REPORT INFORMATION
  Report Type: Spontaneous
  Country: US (occurrence: US)
  Receive Date: 20250317
  Receipt Date: 20250723
  Transmission Date: 20251021
  Serious: Yes (Hospitalization, Other)
  Sender: BAYER HEALTHCARE PHARMACEUTICALS INC.
  Company Number: US-BAYER-2025A034416

PATIENT
  Age: 33 Year
  Sex: Female

DRUGS (2)
  1. MIRENA [Suspect]
     Active Substance: LEVONORGESTREL
     Indication: Intrauterine contraception
     Dosage: 20?G/DAY
     Route: 015
     Dates: start: 201801
  2. REMODULIN [Concomitant]
     Active Substance: TREPROSTINIL
     Route: 042

REACTIONS (9)
  - Dry skin [None]
  - Fluid retention [None]
  - Dyspnoea [Recovered/Resolved]
  - Brain natriuretic peptide increased [None]
  - Shock symptom [None]
  - Abdominal pain [None]
  - Pain in jaw [None]
  - Skin irritation [Recovered/Resolved]
  - Fatigue [None]

NARRATIVE: CASE EVENT DATE: 20250706
